FAERS Safety Report 20405020 (Version 1)
Quarter: 2022Q1

REPORT INFORMATION
  Report Type: Spontaneous
  Country: JP (occurrence: JP)
  Receive Date: 20220131
  Receipt Date: 20220131
  Transmission Date: 20220423
  Serious: Yes (Other)
  Sender: FDA-Public Use
  Company Number: JP-Teva Takeda Yakuhin-2022-JP-000464J

PATIENT
  Age: 84 Year
  Sex: Male
  Weight: 61 kg

DRUGS (4)
  1. PREDNISOLONE [Suspect]
     Active Substance: PREDNISOLONE
     Indication: Pemphigoid
     Dosage: 10 MILLIGRAM DAILY; AFTER BREAKFAST
     Route: 048
     Dates: start: 20220105, end: 20220108
  2. ASPIRIN [Concomitant]
     Active Substance: ASPIRIN
     Dosage: DOSAGE IS UNKNOWN
     Route: 065
  3. TAMSULOSIN HYDROCHLORIDE [Concomitant]
     Active Substance: TAMSULOSIN HYDROCHLORIDE
     Dosage: DOSAGE IS UNKNOWN
     Route: 065
  4. MAGNESIUM OXIDE [Concomitant]
     Active Substance: MAGNESIUM OXIDE
     Dosage: DOSAGE IS UNKNOWN
     Route: 065

REACTIONS (1)
  - Delirium [Recovering/Resolving]

NARRATIVE: CASE EVENT DATE: 20220105
